FAERS Safety Report 19661366 (Version 1)
Quarter: 2021Q3

REPORT INFORMATION
  Report Type: Report from Study
  Country: IT (occurrence: IT)
  Receive Date: 20210805
  Receipt Date: 20210805
  Transmission Date: 20211014
  Serious: Yes (Other)
  Sender: FDA-Public Use
  Company Number: IT-PFIZER INC-202100938930

PATIENT
  Age: 76 Year
  Sex: Female
  Weight: 80 kg

DRUGS (6)
  1. TRASTUZUMAB. [Suspect]
     Active Substance: TRASTUZUMAB
     Dosage: 480 MG, CYCLIC
     Route: 042
     Dates: start: 20210427, end: 20210427
  2. DOCETAXEL ANHYDROUS. [Suspect]
     Active Substance: DOCETAXEL ANHYDROUS
     Indication: BREAST CANCER
     Dosage: UNK UNK, CYCLIC
     Route: 042
     Dates: start: 20210406, end: 20210406
  3. CARBOPLATIN. [Suspect]
     Active Substance: CARBOPLATIN
     Dosage: 350 MG, CYCLIC
     Route: 042
     Dates: start: 20210427, end: 20210427
  4. DOCETAXEL ANHYDROUS. [Suspect]
     Active Substance: DOCETAXEL ANHYDROUS
     Dosage: 110 MG, CYCLIC
     Route: 042
     Dates: start: 20210427, end: 20210427
  5. CARBOPLATIN. [Suspect]
     Active Substance: CARBOPLATIN
     Indication: BREAST CANCER
     Dosage: UNK UNK, CYCLIC
     Route: 042
     Dates: start: 20210406, end: 20210406
  6. TRASTUZUMAB. [Suspect]
     Active Substance: TRASTUZUMAB
     Indication: BREAST CANCER
     Dosage: UNK UNK, CYCLIC
     Route: 042
     Dates: start: 20210406, end: 20210406

REACTIONS (5)
  - Hypocalcaemia [Recovering/Resolving]
  - Diarrhoea [Recovering/Resolving]
  - Hypokalaemia [Recovering/Resolving]
  - Electrolyte imbalance [Recovering/Resolving]
  - Blood creatinine increased [Recovering/Resolving]

NARRATIVE: CASE EVENT DATE: 20210507
